FAERS Safety Report 8647366 (Version 2)
Quarter: 2024Q3

REPORT INFORMATION
  Report Type: Spontaneous
  Country: FR (occurrence: FR)
  Receive Date: 20120703
  Receipt Date: 20240818
  Transmission Date: 20241017
  Serious: Yes (Hospitalization, Other)
  Sender: SANOFI AVENTIS
  Company Number: FR-SANOFI-AVENTIS-2012SA045068

PATIENT
  Age: 41 Year
  Sex: Male

DRUGS (6)
  1. LOVENOX [Suspect]
     Active Substance: ENOXAPARIN SODIUM
     Indication: Thrombosis prophylaxis
     Dosage: 4000 IU,QD
     Route: 058
     Dates: start: 20120502, end: 20120514
  2. AMOXICILLIN\CLAVULANIC ACID [Suspect]
     Active Substance: AMOXICILLIN\CLAVULANIC ACID
     Indication: Lung disorder
     Dosage: 3 G, QD
     Route: 048
     Dates: start: 20120507, end: 20120509
  3. CEFTRIAXONE [Suspect]
     Active Substance: CEFTRIAXONE\CEFTRIAXONE SODIUM
     Indication: Lung disorder
     Dosage: 1 G, QD
     Route: 042
     Dates: start: 20120502, end: 20120507
  4. CODEINE [Suspect]
     Active Substance: CODEINE
     Indication: Pain
     Dosage: UNK UNK,PRN
     Route: 048
     Dates: start: 20120502, end: 20120514
  5. SPIRAMYCIN [Concomitant]
     Active Substance: SPIRAMYCIN
     Indication: Lung disorder
     Dosage: 3 DF, TID; 1.5 MILLIUNIT(S)
     Route: 042
     Dates: start: 20120502, end: 20120507
  6. SPIRAMYCIN [Concomitant]
     Active Substance: SPIRAMYCIN
     Dosage: 3 MIU,QD; DOSE:3 MILLIUNIT(S)
     Route: 048
     Dates: start: 20120507, end: 20120521

REACTIONS (1)
  - Agranulocytosis [Not Recovered/Not Resolved]

NARRATIVE: CASE EVENT DATE: 20120510
